FAERS Safety Report 9238411 (Version 1)
Quarter: 2013Q2

REPORT INFORMATION
  Report Type: Spontaneous
  Country: US (occurrence: None)
  Receive Date: 20130416
  Receipt Date: 20130416
  Transmission Date: 20140414
  Serious: Yes (Other)
  Sender: FDA-Public Use
  Company Number: LIT.SAFETYL.4.11.13

PATIENT
  Age: 77 Year
  Sex: Male

DRUGS (3)
  1. FLUOROURACIL [Suspect]
     Indication: ACTINIC KERATOSIS
     Dosage: FEB, TWICE DAILY TOPICAL
  2. LISINOPRIL 20 MG/DAY [Concomitant]
  3. METFORMIN 1500MG/DAY [Concomitant]

REACTIONS (6)
  - Pruritus [None]
  - Local swelling [None]
  - Lip swelling [None]
  - Oedema peripheral [None]
  - Dysphonia [None]
  - Swelling face [None]
